FAERS Safety Report 17501840 (Version 2)
Quarter: 2022Q4

REPORT INFORMATION
  Report Type: Other
  Country: DE (occurrence: DE)
  Receive Date: 20200305
  Receipt Date: 20221020
  Transmission Date: 20230113
  Serious: Yes (Hospitalization, Other)
  Sender: FDA-Public Use
  Company Number: DE-ADRED-04116-01

PATIENT

DRUGS (8)
  1. NEBIVOLOL [Interacting]
     Active Substance: NEBIVOLOL
     Indication: Product used for unknown indication
     Dosage: 5 MILLIGRAM, (0.5-0-0-0)
     Route: 048
  2. TORSEMIDE [Interacting]
     Active Substance: TORSEMIDE
     Indication: Product used for unknown indication
     Dosage: 20 MILLIGRAM, (0.5-0-0-0)
     Route: 048
  3. EPLERENONE [Suspect]
     Active Substance: EPLERENONE
     Indication: Product used for unknown indication
     Dosage: 25 MILLIGRAM, OD, (1-0-0-0)
     Route: 048
  4. METOPROLOL [Interacting]
     Active Substance: METOPROLOL
     Indication: Product used for unknown indication
     Dosage: 23.75 MILLIGRAM, OD (1-0-0-0)
     Route: 048
  5. SACUBITRIL\VALSARTAN [Interacting]
     Active Substance: SACUBITRIL\VALSARTAN
     Indication: Product used for unknown indication
     Dosage: UNK, OD (1-0-0-0)
     Route: 065
  6. MAGNESIUM [Concomitant]
     Active Substance: MAGNESIUM
     Indication: Product used for unknown indication
     Dosage: 400 MILLIGRAM, OD, ( 0-0-1-0)
     Route: 048
  7. ASPIRIN [Concomitant]
     Active Substance: ASPIRIN
     Indication: Product used for unknown indication
     Dosage: 100 MILLIGRAM, OD, (0-1-0-0)
     Route: 048
  8. ATORVASTATIN [Concomitant]
     Active Substance: ATORVASTATIN
     Indication: Product used for unknown indication
     Dosage: 40 MILLIGRAM, (0-0-0-0.5)
     Route: 048

REACTIONS (6)
  - Fracture [Unknown]
  - Fall [Unknown]
  - Pain [Unknown]
  - Labelled drug-drug interaction medication error [Unknown]
  - Femur fracture [Unknown]
  - Hypotension [Unknown]
